FAERS Safety Report 19124015 (Version 5)
Quarter: 2021Q2

REPORT INFORMATION
  Report Type: Spontaneous
  Country: US (occurrence: US)
  Receive Date: 20210412
  Receipt Date: 20210518
  Transmission Date: 20210717
  Serious: Yes (Death, Life-Threatening, Hospitalization, Other)
  Sender: FDA-Public Use
  Company Number: US-GILEAD-2021-0524749

PATIENT
  Age: 73 Year
  Sex: Male

DRUGS (12)
  1. YESCARTA [Suspect]
     Active Substance: AXICABTAGENE CILOLEUCEL
     Indication: LYMPHOMA
     Dosage: 68 ML
     Route: 042
     Dates: start: 20210329, end: 20210329
  2. OXYGEN. [Concomitant]
     Active Substance: OXYGEN
     Dosage: INCREASED TO MAINTAIN APPROPRIATE OXYGEN SATURATION,
  3. CYTOXAN [Concomitant]
     Active Substance: CYCLOPHOSPHAMIDE
  4. KEPPRA [Concomitant]
     Active Substance: LEVETIRACETAM
     Dosage: UNK
     Dates: start: 20210402
  5. TOCILIZUMAB. [Concomitant]
     Active Substance: TOCILIZUMAB
     Dosage: 8 MG/KG, 2 DOSES 8 HOURS APART
     Dates: start: 20210403, end: 20210404
  6. FLUDARABINE [Concomitant]
     Active Substance: FLUDARABINE PHOSPHATE
  7. POLYETHYLENE GLYCOL [MACROGOL] [Concomitant]
     Active Substance: POLYETHYLENE GLYCOLS
  8. TOCILIZUMAB. [Concomitant]
     Active Substance: TOCILIZUMAB
     Dosage: 8 MG/KG, ONCE
     Dates: start: 20210329, end: 20210329
  9. ALLOPURINOL. [Concomitant]
     Active Substance: ALLOPURINOL
  10. SENNA [SENNOSIDE A+B] [Concomitant]
     Active Substance: SENNOSIDES A AND B
  11. CYCLOPHOSPHAMIDE. [Concomitant]
     Active Substance: CYCLOPHOSPHAMIDE
  12. FLAGYL [Concomitant]
     Active Substance: METRONIDAZOLE\METRONIDAZOLE HYDROCHLORIDE

REACTIONS (17)
  - Cytokine release syndrome [Fatal]
  - Neutropenia [Unknown]
  - Hypotension [Not Recovered/Not Resolved]
  - Haemophagocytic lymphohistiocytosis [Unknown]
  - Sepsis [Unknown]
  - Hyperbilirubinaemia [Not Recovered/Not Resolved]
  - Pyrexia [Recovered/Resolved]
  - Immune effector cell-associated neurotoxicity syndrome [Not Recovered/Not Resolved]
  - Transaminases increased [Not Recovered/Not Resolved]
  - Electrolyte imbalance [Unknown]
  - Mental status changes [Unknown]
  - Multiple organ dysfunction syndrome [Fatal]
  - Hypoxia [Fatal]
  - Renal failure [Not Recovered/Not Resolved]
  - Encephalopathy [Not Recovered/Not Resolved]
  - Hypotension [Recovered/Resolved]
  - Lactic acidosis [Unknown]

NARRATIVE: CASE EVENT DATE: 20210329
